FAERS Safety Report 11915983 (Version 3)
Quarter: 2016Q1

REPORT INFORMATION
  Report Type: Report from Study
  Country: DE (occurrence: DE)
  Receive Date: 20160114
  Receipt Date: 20160128
  Transmission Date: 20160526
  Serious: Yes (Death, Life-Threatening, Hospitalization)
  Sender: FDA-Public Use
  Company Number: PHHY2016DE003412

PATIENT
  Sex: Female
  Weight: 56.3 kg

DRUGS (7)
  1. TILIDINE [Concomitant]
     Active Substance: TILIDINE
     Indication: PRODUCT USED FOR UNKNOWN INDICATION
     Dosage: 50/4 MG, BID (1-0-1)
     Route: 048
     Dates: start: 20150812
  2. AFINITOR [Suspect]
     Active Substance: EVEROLIMUS
     Indication: BREAST CANCER METASTATIC
     Dosage: 5 MG, QD
     Route: 048
     Dates: start: 20150731, end: 20150811
  3. AFINITOR [Suspect]
     Active Substance: EVEROLIMUS
     Dosage: 7.5 MG, QD
     Route: 048
     Dates: start: 20150812, end: 20150906
  4. AFINITOR [Suspect]
     Active Substance: EVEROLIMUS
     Dosage: 10 MG, QD
     Route: 048
     Dates: start: 20150906, end: 20151002
  5. DENOSUMAB [Concomitant]
     Active Substance: DENOSUMAB
     Indication: PRODUCT USED FOR UNKNOWN INDICATION
     Dosage: 120 MG, EVERY 4 WEEKS
     Route: 058
     Dates: start: 201507
  6. EXEMESTANE. [Concomitant]
     Active Substance: EXEMESTANE
     Indication: BREAST CANCER METASTATIC
     Dosage: 25 MG, QD
     Route: 048
     Dates: start: 20150731, end: 20151002
  7. TILIDINE [Concomitant]
     Active Substance: TILIDINE
     Dosage: 15 DRP, PRN
     Route: 065
     Dates: start: 20150812

REACTIONS (11)
  - Bone marrow disorder [Not Recovered/Not Resolved]
  - Metastases to liver [Not Recovered/Not Resolved]
  - Leukopenia [Unknown]
  - Malignant neoplasm progression [Fatal]
  - Oedema [Unknown]
  - Cytopenia [Unknown]
  - Hepatic failure [Fatal]
  - Anaemia [Unknown]
  - Pleural effusion [Recovering/Resolving]
  - Dyspnoea [Unknown]
  - Thrombocytopenia [Unknown]

NARRATIVE: CASE EVENT DATE: 20151002
